FAERS Safety Report 8274442-0 (Version None)
Quarter: 2012Q2

REPORT INFORMATION
  Report Type: 
  Country: None (occurrence: None)
  Receive Date: 20120409
  Receipt Date: 20120405
  Transmission Date: 20120825
  Serious: Yes (Other)
  Sender: FDA-Public Use
  Company Number: SP05649

PATIENT
  Age: 64 Year
  Sex: Male

DRUGS (2)
  1. RIFAXIMIN [Suspect]
     Indication: HEPATIC ENCEPHALOPATHY
     Dosage: 1200 MG (600 MG,2 IN 1 D),ORAL
     Route: 048
     Dates: start: 20110628, end: 20111214
  2. RIFAXIMIN [Suspect]
     Indication: HEPATIC ENCEPHALOPATHY
     Dosage: ORAL
     Route: 048
     Dates: start: 20120201, end: 20120101

REACTIONS (3)
  - URTICARIA [None]
  - DYSPNOEA [None]
  - LARYNGEAL OEDEMA [None]
